FAERS Safety Report 11987925 (Version 1)
Quarter: 2016Q1

REPORT INFORMATION
  Report Type: Spontaneous
  Country: FR (occurrence: FR)
  Receive Date: 20160202
  Receipt Date: 20160202
  Transmission Date: 20160526
  Serious: Yes (Disabling)
  Sender: FDA-Public Use
  Company Number: FR-TOLMAR, INC.-2016FR000509

PATIENT
  Age: 67 Year
  Sex: Male

DRUGS (2)
  1. ZOLADEX [Concomitant]
     Active Substance: GOSERELIN ACETATE
     Route: 065
  2. ELIGARD [Suspect]
     Active Substance: LEUPROLIDE ACETATE
     Indication: PROSTATE CANCER
     Dosage: UNK
     Route: 065
     Dates: start: 201507

REACTIONS (1)
  - Rheumatic disorder [Recovered/Resolved]

NARRATIVE: CASE EVENT DATE: 201507
